FAERS Safety Report 18556883 (Version 1)
Quarter: 2020Q4

REPORT INFORMATION
  Report Type: Spontaneous
  Country: US (occurrence: US)
  Receive Date: 20201128
  Receipt Date: 20201128
  Transmission Date: 20210114
  Serious: Yes (Other)
  Sender: FDA-Public Use
  Company Number: US-009507513-2011USA014321

PATIENT
  Age: 87 Year
  Sex: Female
  Weight: 77.6 kg

DRUGS (16)
  1. ECOTRIN [Concomitant]
     Active Substance: ASPIRIN
  2. ALBUTEROL. [Concomitant]
     Active Substance: ALBUTEROL
  3. PRINIVIL [Suspect]
     Active Substance: LISINOPRIL
     Route: 048
  4. SYMBICORT [Concomitant]
     Active Substance: BUDESONIDE\FORMOTEROL FUMARATE DIHYDRATE
     Dosage: 160/4.5 MCG
  5. TAZTIA XT [Concomitant]
     Active Substance: DILTIAZEM HYDROCHLORIDE
  6. K-DUR [Concomitant]
     Active Substance: POTASSIUM CHLORIDE
  7. COZAAR [Concomitant]
     Active Substance: LOSARTAN POTASSIUM
  8. LASIX [Concomitant]
     Active Substance: FUROSEMIDE
  9. CALCIUM (UNSPECIFIED) (+) VITAMIN D (UNSPECIFIED) [Concomitant]
     Active Substance: CALCIUM CARBONATE\VITAMIN D
     Dosage: 600-200 MG
  10. UNITHROID [Concomitant]
     Active Substance: LEVOTHYROXINE SODIUM
  11. CHOLECALCIFEROL [Concomitant]
     Active Substance: CHOLECALCIFEROL
     Dosage: 1000 UNIT
  12. PULMICORT FLEXHALER [Suspect]
     Active Substance: BUDESONIDE
     Route: 055
  13. OMEPRAZOLE. [Suspect]
     Active Substance: OMEPRAZOLE
     Route: 048
  14. FOSAMAX [Concomitant]
     Active Substance: ALENDRONATE SODIUM
  15. LANOXIN [Concomitant]
     Active Substance: DIGOXIN
  16. PRADAXA [Concomitant]
     Active Substance: DABIGATRAN ETEXILATE MESYLATE

REACTIONS (20)
  - Dyspnoea [Unknown]
  - Gastrooesophageal reflux disease [Unknown]
  - Hypothyroidism [Unknown]
  - Peptic ulcer [Unknown]
  - Cough [Unknown]
  - Breast cancer [Unknown]
  - Cardiac failure congestive [Unknown]
  - Chronic kidney disease [Unknown]
  - Pulmonary hypertension [Unknown]
  - Hypercholesterolaemia [Unknown]
  - Asthma [Unknown]
  - Osteoarthritis [Unknown]
  - Dyslipidaemia [Unknown]
  - Osteopenia [Unknown]
  - Facial paralysis [Unknown]
  - Cardiac disorder [Unknown]
  - Essential hypertension [Unknown]
  - Spinal fracture [Unknown]
  - Renal cyst [Unknown]
  - Atrial fibrillation [Unknown]

NARRATIVE: CASE EVENT DATE: 20081106
